FAERS Safety Report 19113052 (Version 5)
Quarter: 2021Q2

REPORT INFORMATION
  Report Type: Report from Study
  Country: US (occurrence: US)
  Receive Date: 20210409
  Receipt Date: 20210611
  Transmission Date: 20210717
  Serious: No
  Sender: FDA-Public Use
  Company Number: US-BIOVITRUM-2021US3465

PATIENT
  Age: 4 Year
  Sex: Female

DRUGS (1)
  1. KINERET [Suspect]
     Active Substance: ANAKINRA
     Indication: JUVENILE IDIOPATHIC ARTHRITIS
     Route: 058
     Dates: start: 20210326

REACTIONS (6)
  - Injection site erythema [Recovered/Resolved]
  - Injection site bruising [Unknown]
  - Rash [Unknown]
  - Injection site mass [Unknown]
  - Off label use [Unknown]
  - Pyrexia [Unknown]

NARRATIVE: CASE EVENT DATE: 20210326
